FAERS Safety Report 24712176 (Version 4)
Quarter: 2025Q3

REPORT INFORMATION
  Report Type: Spontaneous
  Country: EU (occurrence: EU)
  Receive Date: 20241209
  Receipt Date: 20250803
  Transmission Date: 20251021
  Serious: Yes (Other)
  Sender: ALEXION PHARMACEUTICALS
  Company Number: EU-Covis Pharma Europe B.V.-2024COV01401

PATIENT
  Age: 33 Year
  Sex: Female

DRUGS (13)
  1. BUDESONIDE\FORMOTEROL [Suspect]
     Active Substance: BUDESONIDE\FORMOTEROL
     Route: 065
  2. CICLESONIDE [Suspect]
     Active Substance: CICLESONIDE
     Indication: Asthma
     Dosage: 1 DOSAGE FORM, QD
     Dates: start: 201510
  3. CICLESONIDE [Suspect]
     Active Substance: CICLESONIDE
     Dosage: 2X1 INHALATION AS NEEDED
     Dates: start: 202405
  4. CICLESONIDE [Suspect]
     Active Substance: CICLESONIDE
     Dosage: 2 DOSAGE FORM, Q12H
  5. ALBUTEROL [Suspect]
     Active Substance: ALBUTEROL
     Route: 065
  6. FLUTICASONE FUROATE [Suspect]
     Active Substance: FLUTICASONE FUROATE
     Dosage: 92/22MCG
     Route: 065
  7. FLUTICASONE [Suspect]
     Active Substance: FLUTICASONE
     Route: 065
  8. FLUTICASONE [Suspect]
     Active Substance: FLUTICASONE
     Dosage: 125 MCG 1 INHALATION PER DAY.
     Dates: start: 20151118
  9. MOMETASONE [Suspect]
     Active Substance: MOMETASONE
     Route: 065
  10. OLOPATADINE [Suspect]
     Active Substance: OLOPATADINE
  11. DESLORATADINE [Suspect]
     Active Substance: DESLORATADINE
     Dosage: 1 DOSAGE FORM, QD
     Route: 065
  12. AZITHROMYCIN [Suspect]
     Active Substance: AZITHROMYCIN
  13. FENOTEROL HYDROBROMIDE\IPRATROPIUM BROMIDE [Concomitant]
     Active Substance: FENOTEROL HYDROBROMIDE\IPRATROPIUM BROMIDE

REACTIONS (15)
  - Asthma [Unknown]
  - Chest discomfort [Unknown]
  - Cough [Unknown]
  - Vertigo [Unknown]
  - Productive cough [Unknown]
  - Dust allergy [Unknown]
  - Seasonal allergy [Unknown]
  - Allergy to animal [Unknown]
  - Ear discomfort [Unknown]
  - Infection [Unknown]
  - Chest pain [Unknown]
  - Cough [Unknown]
  - Wheezing [Unknown]
  - Asthma [Unknown]
  - Dyspnoea exertional [Unknown]

NARRATIVE: CASE EVENT DATE: 20151101
